FAERS Safety Report 20323819 (Version 2)
Quarter: 2022Q1

REPORT INFORMATION
  Report Type: Spontaneous
  Country: US (occurrence: US)
  Receive Date: 20220111
  Receipt Date: 20220202
  Transmission Date: 20220423
  Serious: Yes (Other)
  Sender: FDA-Public Use
  Company Number: US-LUNDBECK-DKLU3043174

PATIENT
  Age: 7 Month
  Sex: Male

DRUGS (3)
  1. SABRIL [Suspect]
     Active Substance: VIGABATRIN
     Indication: Infantile spasms
     Dosage: DAY 1 TO 5
     Route: 048
     Dates: start: 202112
  2. SABRIL [Suspect]
     Active Substance: VIGABATRIN
     Dosage: DAY 6 TO 10
     Route: 048
  3. SABRIL [Suspect]
     Active Substance: VIGABATRIN
     Dosage: DAY 11 AND ONWARD
     Route: 048

REACTIONS (1)
  - Seizure [Unknown]

NARRATIVE: CASE EVENT DATE: 20211201
